FAERS Safety Report 17806566 (Version 1)
Quarter: 2020Q2

REPORT INFORMATION
  Report Type: Spontaneous
  Country: DE (occurrence: DE)
  Receive Date: 20200519
  Receipt Date: 20200519
  Transmission Date: 20200714
  Serious: No
  Sender: FDA-Public Use
  Company Number: None

PATIENT
  Age: 37 Year
  Sex: Female
  Weight: 50 kg

DRUGS (5)
  1. FOLIC ACID. [Concomitant]
     Active Substance: FOLIC ACID
  2. ZOLPIDEM [Suspect]
     Active Substance: ZOLPIDEM TARTRATE
  3. QUETAPIN RETARD 300MG [Concomitant]
  4. MIRTAZAPIN-HORMOSAN [Suspect]
     Active Substance: MIRTAZAPINE
     Indication: SLEEP DEFICIT
     Dosage: ?          QUANTITY:50 TABLET(S);?
     Route: 048
     Dates: start: 20200501
  5. QUETAPIN (NORMAL) 50MG [Concomitant]

REACTIONS (3)
  - Paraesthesia oral [None]
  - Eye paraesthesia [None]
  - Paraesthesia [None]

NARRATIVE: CASE EVENT DATE: 20200519
